FAERS Safety Report 24789586 (Version 4)
Quarter: 2025Q3

REPORT INFORMATION
  Report Type: Spontaneous
  Country: JP (occurrence: JP)
  Receive Date: 20241230
  Receipt Date: 20250809
  Transmission Date: 20251021
  Serious: Yes (Death, Disabling, Other)
  Sender: ALEXION PHARMACEUTICALS
  Company Number: JP-ASTRAZENECA-240145423_064320_P_1

PATIENT
  Age: 81 Year
  Sex: Male
  Weight: 62 kg

DRUGS (17)
  1. ANDEXXA [Suspect]
     Active Substance: ANDEXANET ALFA
     Indication: Gastrointestinal haemorrhage
     Dates: start: 20241220, end: 20241220
  2. ANDEXXA [Suspect]
     Active Substance: ANDEXANET ALFA
     Indication: Gastrointestinal haemorrhage
  3. XARELTO [Concomitant]
     Active Substance: RIVAROXABAN
  4. XARELTO [Concomitant]
     Active Substance: RIVAROXABAN
     Indication: Cerebral infarction
  5. XARELTO [Concomitant]
     Active Substance: RIVAROXABAN
  6. MEYLON [Concomitant]
     Active Substance: SODIUM BICARBONATE
     Indication: Lactic acidosis
     Dosage: 250 MILLILITER, QD
     Dates: start: 20241220, end: 20241220
  7. NOREPINEPHRINE BITARTRATE [Concomitant]
     Active Substance: NOREPINEPHRINE BITARTRATE
     Indication: Gastrointestinal haemorrhage
     Dates: start: 20241220, end: 20241221
  8. CALCIUM GLUCONATE [Concomitant]
     Active Substance: CALCIUM GLUCONATE
     Indication: Hyperkalaemia
     Dosage: 2 INTERNATIONAL UNIT, QD
     Dates: start: 20241220, end: 20241220
  9. Rinaceto f [Concomitant]
     Route: 065
  10. DEXTROSE [Concomitant]
     Active Substance: DEXTROSE MONOHYDRATE
     Indication: Hyperkalaemia
     Dosage: 20 MILLILITER, QD
     Dates: start: 20241220, end: 20241220
  11. HUMULIN R [Concomitant]
     Active Substance: INSULIN HUMAN
     Indication: Hyperkalaemia
     Dosage: 4 INTERNATIONAL UNIT, QD
     Dates: start: 20241220, end: 20241220
  12. THROMBIN [Concomitant]
     Active Substance: THROMBIN
     Indication: Gastrointestinal haemorrhage
     Dosage: ENDOSCOPIC PROCEDURE
     Route: 065
     Dates: start: 20241220, end: 20241220
  13. Dicanon [Concomitant]
     Indication: Gastrointestinal haemorrhage
     Dosage: ENDOSCOPIC PROCEDURE
     Route: 065
     Dates: start: 20241220, end: 20241220
  14. NIFEDIPINE [Concomitant]
     Active Substance: NIFEDIPINE
  15. NIFEDIPINE [Concomitant]
     Active Substance: NIFEDIPINE
  16. AZILSARTAN KAMEDOXOMIL [Concomitant]
     Active Substance: AZILSARTAN KAMEDOXOMIL
  17. AZILSARTAN KAMEDOXOMIL [Concomitant]
     Active Substance: AZILSARTAN KAMEDOXOMIL

REACTIONS (5)
  - Myocardial infarction [Fatal]
  - Cardiogenic shock [Fatal]
  - Cerebral infarction [Not Recovered/Not Resolved]
  - Renal infarct [Not Recovered/Not Resolved]
  - Deep vein thrombosis [Not Recovered/Not Resolved]

NARRATIVE: CASE EVENT DATE: 20241220
